FAERS Safety Report 6754316-4 (Version None)
Quarter: 2010Q2

REPORT INFORMATION
  Report Type: 
  Country: None (occurrence: None)
  Receive Date: 20100603
  Receipt Date: 20100525
  Transmission Date: 20101027
  Serious: Yes (Other)
  Sender: FDA-Public Use
  Company Number: FR-JNJCH-2010010320

PATIENT
  Age: 30 Year
  Sex: Female

DRUGS (1)
  1. LISTERINE TARTAR CONTROL [Suspect]
     Indication: DENTAL DISORDER PROPHYLAXIS
     Dosage: TEXT:UNKNOWN
     Route: 048
     Dates: start: 20100301, end: 20100401

REACTIONS (2)
  - TOOTH DISORDER [None]
  - TOOTHACHE [None]
